FAERS Safety Report 5483131-7 (Version None)
Quarter: 2007Q4

REPORT INFORMATION
  Report Type: 
  Country: None (occurrence: None)
  Receive Date: 20071011
  Receipt Date: 20071005
  Transmission Date: 20080405
  Serious: Yes (Hospitalization)
  Sender: FDA-Public Use
  Company Number: IT-MERCK-0710ITA00025

PATIENT
  Sex: Male

DRUGS (1)
  1. NOROXIN [Suspect]
     Route: 065

REACTIONS (2)
  - STOMATITIS [None]
  - VASCULITIC RASH [None]
